FAERS Safety Report 24644315 (Version 2)
Quarter: 2025Q3

REPORT INFORMATION
  Report Type: Report from Study
  Country: US (occurrence: US)
  Receive Date: 20241120
  Receipt Date: 20250802
  Transmission Date: 20251020
  Serious: Yes (Other)
  Sender: ALEXION PHARMACEUTICALS
  Company Number: US-AstraZeneca-CH-00748628A

PATIENT
  Sex: Female

DRUGS (2)
  1. TEZEPELUMAB [Suspect]
     Active Substance: TEZEPELUMAB
     Route: 065
  2. TEZEPELUMAB [Suspect]
     Active Substance: TEZEPELUMAB

REACTIONS (28)
  - Gastrooesophageal reflux disease [Unknown]
  - Reflux laryngitis [Unknown]
  - Obstructive sleep apnoea syndrome [Unknown]
  - Dysphagia [Unknown]
  - Chronic respiratory failure [Unknown]
  - Vocal cord leukoplakia [Unknown]
  - Essential hypertension [Unknown]
  - Coronary artery disease [Unknown]
  - Cardiac failure congestive [Unknown]
  - Angina unstable [Unknown]
  - Migraine [Unknown]
  - Asthma [Unknown]
  - Rhinitis allergic [Unknown]
  - Asthma-chronic obstructive pulmonary disease overlap syndrome [Unknown]
  - Laryngeal oedema [Unknown]
  - Obesity [Unknown]
  - Hyperlipidaemia [Unknown]
  - Depression [Unknown]
  - Chest pain [Unknown]
  - Syncope [Unknown]
  - Localised oedema [Unknown]
  - Memory impairment [Unknown]
  - Cognitive disorder [Unknown]
  - Cerebrovascular accident [Unknown]
  - Dyslipidaemia [Unknown]
  - Dyspnoea exertional [Unknown]
  - Cellulitis [Unknown]
  - Hypokalaemia [Unknown]
